FAERS Safety Report 7804448-4 (Version None)
Quarter: 2011Q4

REPORT INFORMATION
  Report Type: 
  Country: None (occurrence: None)
  Receive Date: 20111010
  Receipt Date: 20110927
  Transmission Date: 20120403
  Serious: Yes (Hospitalization)
  Sender: FDA-Public Use
  Company Number: US-BAYER-2010-004343

PATIENT
  Age: 27 Year
  Sex: Female
  Weight: 74.83 kg

DRUGS (6)
  1. CLARITHROMYCIN [Concomitant]
     Dosage: 500 MG, UNK
  2. DROSPIRENONE AND ETHINYL ESTRADIOL [Suspect]
     Indication: CONTRACEPTION
     Dosage: UNK
     Dates: start: 20080101, end: 20090101
  3. VALTREX [Concomitant]
  4. YASMIN [Suspect]
     Indication: CONTRACEPTION
     Dosage: UNK
     Dates: start: 20070101, end: 20080101
  5. AZITHROMYCIN [Concomitant]
     Dosage: 250 MG, UNK
  6. AMOXICILLIN AND CLAVULANATE POTASSIUM [Concomitant]

REACTIONS (10)
  - FEAR [None]
  - BILIARY DYSKINESIA [None]
  - PAIN [None]
  - NAUSEA [None]
  - VOMITING [None]
  - GALLBLADDER NON-FUNCTIONING [None]
  - CHOLECYSTITIS CHRONIC [None]
  - ANXIETY [None]
  - ABDOMINAL PAIN [None]
  - DISCOMFORT [None]
